FAERS Safety Report 5987006-6 (Version None)
Quarter: 2008Q4

REPORT INFORMATION
  Report Type: 
  Country: None (occurrence: None)
  Receive Date: 20081209
  Receipt Date: 20081202
  Transmission Date: 20090506
  Serious: Yes (Hospitalization)
  Sender: FDA-Public Use
  Company Number: B0540210A

PATIENT
  Age: 85 Year
  Sex: Female

DRUGS (4)
  1. VALTREX [Suspect]
     Indication: HERPES ZOSTER
     Dosage: 1000MG THREE TIMES PER DAY
     Route: 048
     Dates: start: 20080929, end: 20081001
  2. FAMOTIDINE [Concomitant]
     Route: 065
  3. MICARDIS [Concomitant]
     Route: 048
  4. LIPITOR [Concomitant]
     Route: 048

REACTIONS (4)
  - ALTERED STATE OF CONSCIOUSNESS [None]
  - MENINGITIS [None]
  - RENAL FAILURE [None]
  - RENAL TUBULAR DISORDER [None]
